FAERS Safety Report 18168990 (Version 1)
Quarter: 2020Q3

REPORT INFORMATION
  Report Type: Spontaneous
  Country: US (occurrence: US)
  Receive Date: 20200818
  Receipt Date: 20200818
  Transmission Date: 20201103
  Serious: Yes (Hospitalization)
  Sender: FDA-Public Use
  Company Number: None

PATIENT
  Age: 22 Year
  Sex: Male

DRUGS (24)
  1. LEVETIRACETA LIDOCAINE [Concomitant]
  2. LORAZEPAM. [Concomitant]
     Active Substance: LORAZEPAM
  3. NYSTOP [Concomitant]
     Active Substance: NYSTATIN
  4. FUROSEMIDE. [Concomitant]
     Active Substance: FUROSEMIDE
  5. DOK [Concomitant]
     Active Substance: DOCUSATE SODIUM
  6. LEVALBUTEROL NEB [Concomitant]
  7. NYSTATIN. [Concomitant]
     Active Substance: NYSTATIN
  8. VIMPAT [Concomitant]
     Active Substance: LACOSAMIDE
  9. IPRATROPIUM SOL [Concomitant]
  10. NEO/POLY/HC [Concomitant]
     Active Substance: HYDROCORTISONE\NEOMYCIN\POLYMYXIN B SULFATE
  11. ALBUTEROL NEB [Concomitant]
     Active Substance: ALBUTEROL
  12. CAYSTON [Concomitant]
     Active Substance: AZTREONAM
  13. CEFUROXIME. [Concomitant]
     Active Substance: CEFUROXIME
  14. FERROUS SULF [Concomitant]
     Active Substance: FERROUS SULFATE
  15. POLYETH GLYC [Concomitant]
     Active Substance: POLYETHYLENE GLYCOLS
  16. SSD CRE [Concomitant]
  17. AZITHROMYCIN ANHYDROUS. [Concomitant]
     Active Substance: AZITHROMYCIN ANHYDROUS
  18. METOCLOPRAM [Concomitant]
     Active Substance: METOCLOPRAMIDE
  19. NEXCIUM [Concomitant]
  20. PHENOBARB [Concomitant]
     Active Substance: PHENOBARBITAL SODIUM
  21. TOBRAMYCIN 300MG/5ML 20ML [Suspect]
     Active Substance: TOBRAMYCIN
     Indication: CHRONIC RESPIRATORY FAILURE
     Dosage: 1 VIAL BID INH EVERY OTHER 28 D
     Route: 055
     Dates: start: 20190126
  22. GLYCOPYRROL [Concomitant]
  23. HYOSCYAMINE. [Concomitant]
     Active Substance: HYOSCYAMINE
  24. MONTELUKAST [Concomitant]
     Active Substance: MONTELUKAST SODIUM

REACTIONS (3)
  - Fluid retention [None]
  - Hypersensitivity [None]
  - Respiratory failure [None]

NARRATIVE: CASE EVENT DATE: 20200702
